FAERS Safety Report 7379263-9 (Version None)
Quarter: 2011Q1

REPORT INFORMATION
  Report Type: 
  Country: None (occurrence: None)
  Receive Date: 20110328
  Receipt Date: 20110322
  Transmission Date: 20110831
  Serious: Yes (Life-Threatening, Hospitalization)
  Sender: FDA-Public Use
  Company Number: JP-BRISTOL-MYERS SQUIBB COMPANY-15527351

PATIENT
  Age: 83 Year
  Sex: Female
  Weight: 43 kg

DRUGS (9)
  1. MYSLEE [Concomitant]
     Dosage: TAB
     Route: 048
     Dates: start: 20100329
  2. NEUROTROPIN [Concomitant]
     Dosage: TABLET,1DF:16UNITS
     Route: 048
     Dates: start: 20100329
  3. SPRYCEL [Suspect]
     Indication: CHRONIC MYELOID LEUKAEMIA
     Dosage: THERAPY ON 17JAN11
     Route: 048
     Dates: start: 20100117, end: 20110118
  4. VFEND [Suspect]
     Indication: PNEUMONIA
     Dosage: INTERRUPTED ON 18-JAN-2011 RESTARTED ON 25-JAN-2011
     Route: 048
     Dates: start: 20110106
  5. LYRICA [Concomitant]
     Dosage: CAP
     Route: 048
     Dates: start: 20101125
  6. PARIET [Concomitant]
     Dosage: TAB
     Route: 048
     Dates: start: 20100329
  7. IRESSA [Suspect]
     Indication: LUNG NEOPLASM MALIGNANT
     Dosage: TAB,STOPPED ON 18JAN11.
     Route: 048
     Dates: start: 20100524
  8. CONIEL [Concomitant]
     Dosage: TAB
     Route: 048
     Dates: start: 20100329
  9. SOLDEM 3A [Concomitant]
     Dosage: INJECTION,SOLDEM 1 INJ 500ML/DAY FROM 18JAN11-21JAN11
     Route: 042
     Dates: start: 20110118, end: 20110124

REACTIONS (4)
  - MALAISE [None]
  - PYREXIA [None]
  - RHABDOMYOLYSIS [None]
  - RENAL DISORDER [None]
